FAERS Safety Report 24552204 (Version 1)
Quarter: 2024Q4

REPORT INFORMATION
  Report Type: Spontaneous
  Country: JP (occurrence: JP)
  Receive Date: 20241026
  Receipt Date: 20241026
  Transmission Date: 20250115
  Serious: Yes (Life-Threatening)
  Sender: AMGEN
  Company Number: JP-AMGEN-JPNSP2024210135

PATIENT
  Sex: Female

DRUGS (2)
  1. BLINCYTO [Suspect]
     Active Substance: BLINATUMOMAB
     Indication: B precursor type acute leukaemia
     Dosage: 9 MC, 24HOUR CONTINUOUS INTRAVENOUS DRIP INFUSION (CENTRAL VENOUS)
     Route: 040
     Dates: start: 20240513, end: 2024
  2. BLINCYTO [Suspect]
     Active Substance: BLINATUMOMAB
     Dosage: 28 MC, 24HOUR CONTINUOUS INTRAVENOUS DRIP INFUSION (CENTRAL VENOUS)
     Route: 040
     Dates: start: 2024, end: 202410

REACTIONS (2)
  - B precursor type acute leukaemia [Not Recovered/Not Resolved]
  - Therapeutic product effect incomplete [Unknown]

NARRATIVE: CASE EVENT DATE: 20241001
